FAERS Safety Report 7669893-9 (Version None)
Quarter: 2011Q3

REPORT INFORMATION
  Report Type: 
  Country: None (occurrence: None)
  Receive Date: 20110808
  Receipt Date: 20110726
  Transmission Date: 20111222
  Serious: Yes (Other)
  Sender: FDA-Public Use
  Company Number: PHHY2011US67829

PATIENT
  Sex: Female
  Weight: 113.4 kg

DRUGS (15)
  1. LEVOTHYROXINE SODIUM [Concomitant]
     Dosage: UNK UKN, UNK
     Route: 048
  2. VITAMIN D [Concomitant]
     Dosage: UNK UKN, UNK
     Route: 048
  3. COLACE [Concomitant]
     Dosage: 100 MG, UNK
     Route: 048
  4. KRILL OIL [Concomitant]
     Dosage: 1000 MG, UNK
     Route: 048
  5. CYMBALTA [Concomitant]
     Dosage: 60 MG, UNK
     Route: 048
  6. METOPROLOL TARTRATE [Concomitant]
     Dosage: 100 MG, UNK
     Route: 048
  7. METHOTREXATE [Concomitant]
     Dosage: 20 MG, UNK
     Route: 058
  8. GLEEVEC [Suspect]
     Dosage: 400 MG, QD
     Route: 048
  9. MOTRIN [Concomitant]
     Dosage: 800 MG, UNK
     Route: 048
  10. LIPITOR [Concomitant]
     Dosage: 40 MG, UNK
     Route: 048
  11. CALCIUM CARBONATE [Concomitant]
     Dosage: 600 MG, UNK
     Route: 048
  12. PLAVIX [Concomitant]
     Dosage: 300 MG, UNK
     Route: 048
  13. CENTRUM TAB SILVER [Concomitant]
     Dosage: UNK UKN, UNK
     Route: 048
  14. PLAQUENIL [Concomitant]
     Dosage: 200 MG, UNK
     Route: 048
  15. ASPIRIN [Concomitant]
     Dosage: 325 MG, UNK
     Route: 048

REACTIONS (3)
  - NAUSEA [None]
  - ARTHRALGIA [None]
  - PSORIATIC ARTHROPATHY [None]
